FAERS Safety Report 8850753 (Version 1)
Quarter: 2012Q4

REPORT INFORMATION
  Report Type: 
  Country: US (occurrence: US)
  Receive Date: 20121019
  Receipt Date: 20121019
  Transmission Date: 20130627
  Serious: Yes (Hospitalization)
  Sender: FDA-Public Use
  Company Number: US-GILEAD-2012-0063111

PATIENT
  Age: 60 Year
  Sex: Female

DRUGS (2)
  1. LETAIRIS [Suspect]
     Indication: PULMONARY HYPERTENSION
     Dosage: 10 mg, QD
     Route: 048
     Dates: start: 20111109
  2. LETAIRIS [Suspect]
     Dosage: 10 mg, UNK
     Route: 048

REACTIONS (3)
  - Respiratory arrest [Recovered/Resolved]
  - Endotracheal intubation [Recovered/Resolved]
  - Mechanical ventilation [Recovered/Resolved]
